FAERS Safety Report 24409226 (Version 3)
Quarter: 2024Q4

REPORT INFORMATION
  Report Type: Report from Study
  Country: CA (occurrence: CA)
  Receive Date: 20241008
  Receipt Date: 20241023
  Transmission Date: 20250114
  Serious: Yes (Other)
  Sender: SANDOZ
  Company Number: CA-002147023-NVSC2022CA124927

PATIENT
  Age: 75 Year
  Sex: Female

DRUGS (3)
  1. HYRIMOZ [Suspect]
     Active Substance: ADALIMUMAB-ADAZ
     Indication: Crohn^s disease
     Dosage: 40 MG
     Route: 058
     Dates: start: 20220107
  2. HYRIMOZ [Suspect]
     Active Substance: ADALIMUMAB-ADAZ
     Dosage: 80 MG, QW(40 MG / 0.8 ML (PEN))
     Route: 058
     Dates: start: 20220107
  3. HYRIMOZ [Suspect]
     Active Substance: ADALIMUMAB-ADAZ
     Dosage: 80MG;WEEKLY PRE-FILLED SYRINGE
     Route: 058
     Dates: start: 20220107

REACTIONS (8)
  - Large intestinal stenosis [Unknown]
  - Abdominal pain [Unknown]
  - General physical health deterioration [Unknown]
  - Diarrhoea [Unknown]
  - Injection site erythema [Unknown]
  - Wrong technique in product usage process [Unknown]
  - Product dose omission issue [Unknown]
  - Off label use [Unknown]

NARRATIVE: CASE EVENT DATE: 20240201
